FAERS Safety Report 21738856 (Version 1)
Quarter: 2022Q4

REPORT INFORMATION
  Report Type: Spontaneous
  Country: US (occurrence: US)
  Receive Date: 20221216
  Receipt Date: 20221216
  Transmission Date: 20230113
  Serious: Yes (Hospitalization, Other)
  Sender: FDA-Public Use
  Company Number: US-CIPLA LTD.-2022US07138

PATIENT
  Sex: Male

DRUGS (24)
  1. LEVETIRACETAM [Suspect]
     Active Substance: LEVETIRACETAM
     Indication: Generalised tonic-clonic seizure
     Dosage: UNK
     Route: 065
  2. LEVETIRACETAM [Suspect]
     Active Substance: LEVETIRACETAM
     Indication: New onset refractory status epilepticus
     Dosage: 2000 MILLIGRAM, BID
     Route: 065
  3. LEVETIRACETAM [Suspect]
     Active Substance: LEVETIRACETAM
     Dosage: UNK, REDUCING
     Route: 065
  4. TOPIRAMATE [Suspect]
     Active Substance: TOPIRAMATE
     Indication: Seizure
     Dosage: UNK, HIGH DOSE
     Route: 065
  5. TOPIRAMATE [Suspect]
     Active Substance: TOPIRAMATE
     Dosage: 200 MILLIGRAM, TID
     Route: 065
  6. PHENYTOIN [Suspect]
     Active Substance: PHENYTOIN
     Indication: Generalised tonic-clonic seizure
     Dosage: UNK
     Route: 065
  7. PHENYTOIN [Suspect]
     Active Substance: PHENYTOIN
     Indication: New onset refractory status epilepticus
     Dosage: UNK, INCREASED
     Route: 065
  8. PHENYTOIN [Suspect]
     Active Substance: PHENYTOIN
     Indication: Seizure cluster
     Dosage: 100 MG THREE TIMES DAILY
     Route: 065
  9. PHENYTOIN [Suspect]
     Active Substance: PHENYTOIN
     Dosage: 200 MG THREE TIMES DAILY
     Route: 065
  10. LACOSAMIDE [Suspect]
     Active Substance: LACOSAMIDE
     Indication: Generalised tonic-clonic seizure
     Dosage: UNK
     Route: 065
  11. LACOSAMIDE [Suspect]
     Active Substance: LACOSAMIDE
     Indication: New onset refractory status epilepticus
     Dosage: 200 MILLIGRAM, BID
     Route: 065
  12. LACOSAMIDE [Suspect]
     Active Substance: LACOSAMIDE
     Dosage: 250 MILLIGRAM, BID
     Route: 065
  13. CLONAZEPAM [Suspect]
     Active Substance: CLONAZEPAM
     Indication: Generalised tonic-clonic seizure
     Dosage: UNK, TID
     Route: 065
  14. CLONAZEPAM [Suspect]
     Active Substance: CLONAZEPAM
     Indication: New onset refractory status epilepticus
     Dosage: 2 MILLIGRAM, QD
     Route: 065
  15. CLONAZEPAM [Suspect]
     Active Substance: CLONAZEPAM
     Indication: Seizure cluster
     Dosage: 1 MILLIGRAM, BID
     Route: 065
  16. KETAMINE [Suspect]
     Active Substance: KETAMINE
     Indication: Epilepsy
     Dosage: UNK
     Route: 065
  17. FENTANYL [Suspect]
     Active Substance: FENTANYL
     Indication: Epilepsy
     Dosage: UNK
     Route: 042
  18. FENTANYL [Suspect]
     Active Substance: FENTANYL
     Dosage: UNK, WEANING OFF
     Route: 042
  19. MIDAZOLAM [Suspect]
     Active Substance: MIDAZOLAM
     Indication: Epilepsy
     Dosage: UNK
     Route: 042
  20. MIDAZOLAM [Suspect]
     Active Substance: MIDAZOLAM
     Dosage: UNK, WEANED OFF
     Route: 042
  21. PROPOFOL [Suspect]
     Active Substance: PROPOFOL
     Indication: Epilepsy
     Dosage: UNK, HIGH DOSE
     Route: 042
  22. PROPOFOL [Suspect]
     Active Substance: PROPOFOL
     Dosage: UNK, HIGH DOSE, WEANING OFF
     Route: 042
  23. LORAZEPAM [Suspect]
     Active Substance: LORAZEPAM
     Indication: Generalised tonic-clonic seizure
     Dosage: UNK
     Route: 042
  24. METHYLPREDNISOLONE [Concomitant]
     Active Substance: METHYLPREDNISOLONE
     Indication: Encephalitis autoimmune
     Dosage: 1 GRAM DAILY
     Route: 042

REACTIONS (15)
  - Epilepsy [Recovering/Resolving]
  - Hallucination [Recovering/Resolving]
  - Memory impairment [Unknown]
  - Aphasia [Unknown]
  - Cognitive disorder [Unknown]
  - Mood swings [Recovering/Resolving]
  - Irritability [Recovering/Resolving]
  - Impulsive behaviour [Recovered/Resolved]
  - Aggression [Recovering/Resolving]
  - Fear [Recovering/Resolving]
  - Persecutory delusion [Recovering/Resolving]
  - Drug ineffective [Unknown]
  - Drug intolerance [Unknown]
  - Drug resistance [Unknown]
  - Treatment failure [Unknown]
